FAERS Safety Report 25048001 (Version 3)
Quarter: 2025Q2

REPORT INFORMATION
  Report Type: Report from Study
  Country: GB (occurrence: GB)
  Receive Date: 20250306
  Receipt Date: 20250508
  Transmission Date: 20250716
  Serious: Yes (Other)
  Sender: NOVARTIS
  Company Number: GB-002147023-NVSC2024GB247125

PATIENT
  Sex: Female

DRUGS (1)
  1. COSENTYX [Suspect]
     Active Substance: SECUKINUMAB
     Indication: Spinal osteoarthritis
     Dosage: 150 MG, QMO
     Route: 058

REACTIONS (6)
  - Lower respiratory tract infection [Unknown]
  - Decreased immune responsiveness [Unknown]
  - Malaise [Unknown]
  - COVID-19 [Unknown]
  - Anaemia [Unknown]
  - Adverse drug reaction [Unknown]
